FAERS Safety Report 20979367 (Version 1)
Quarter: 2022Q2

REPORT INFORMATION
  Report Type: Spontaneous
  Country: US (occurrence: None)
  Receive Date: 20220620
  Receipt Date: 20220620
  Transmission Date: 20220720
  Serious: Yes (Death)
  Sender: FDA-Public Use
  Company Number: US-ROCHE-3118380

PATIENT
  Age: 83 Year
  Sex: Male

DRUGS (1)
  1. ESBRIET [Suspect]
     Active Substance: PIRFENIDONE
     Indication: Idiopathic pulmonary fibrosis
     Dosage: TAKE 1 TABLET 3 TIMES A DAY FOR 1 WEEK THEN 2 TABLETS 3 TIMES A DAY FOR 1 WEEK AND THEN 3 TABLETS 3
     Route: 048

REACTIONS (2)
  - Lung neoplasm malignant [Fatal]
  - Illness [Unknown]

NARRATIVE: CASE EVENT DATE: 20220603
